FAERS Safety Report 22521577 (Version 4)
Quarter: 2023Q2

REPORT INFORMATION
  Report Type: Report from Study
  Country: ES (occurrence: ES)
  Receive Date: 20230605
  Receipt Date: 20230630
  Transmission Date: 20230722
  Serious: Yes (Other)
  Sender: FDA-Public Use
  Company Number: ES-AKCEA THERAPEUTICS, INC.-2022IS001338

PATIENT

DRUGS (25)
  1. TEGSEDI [Suspect]
     Active Substance: INOTERSEN SODIUM
     Indication: Amyloidosis senile
     Dosage: 284 MG, QW
     Route: 058
     Dates: start: 20220127
  2. TEGSEDI [Suspect]
     Active Substance: INOTERSEN SODIUM
     Dosage: UNK
     Route: 065
  3. TEGSEDI [Suspect]
     Active Substance: INOTERSEN SODIUM
     Dosage: UNK
     Route: 065
     Dates: start: 20220228
  4. CEFUROXIME [Concomitant]
     Active Substance: CEFUROXIME
     Indication: Urinary tract infection
     Dosage: 500 MILLIGRAM
     Route: 065
  5. CEFUROXIME [Concomitant]
     Active Substance: CEFUROXIME
     Indication: Dysuria
     Dosage: 500 MILLIGRAM FOR 5 DAYS
     Route: 065
  6. CEFUROXIME [Concomitant]
     Active Substance: CEFUROXIME
     Indication: Urine odour abnormal
     Dosage: UNK
     Route: 065
  7. TACROLIMUS [Concomitant]
     Active Substance: TACROLIMUS
     Indication: Product used for unknown indication
     Dosage: 7 MILLIGRAM, QD
     Route: 048
  8. CELLCEPT [Concomitant]
     Active Substance: MYCOPHENOLATE MOFETIL
     Indication: Product used for unknown indication
     Dosage: 50 MILLIGRAM, 3QD
     Route: 048
  9. BRIMVERA [Concomitant]
     Indication: Product used for unknown indication
     Dosage: 2 MILLIGRAM, 1 DROP BID
     Route: 065
  10. DORZOLAMIDE HYDROCHLORIDE\TIMOLOL MALEATE [Concomitant]
     Active Substance: DORZOLAMIDE HYDROCHLORIDE\TIMOLOL MALEATE
     Indication: Product used for unknown indication
     Dosage: 1 DROP, BID
     Route: 065
  11. SYSTANE (HYPROMELLOSE 2910 (4000 MPA.S)) [Concomitant]
     Active Substance: HYPROMELLOSE 2910 (4000 MPA.S)
     Indication: Product used for unknown indication
     Dosage: 1 DROP, PRN
     Route: 048
  12. OLMESARTAN MEDOXOMIL [Concomitant]
     Active Substance: OLMESARTAN MEDOXOMIL
     Indication: Product used for unknown indication
     Dosage: 20 MILLIGRAM, QD
     Route: 048
  13. ASPIRIN [Concomitant]
     Active Substance: ASPIRIN
     Indication: Product used for unknown indication
     Dosage: 10 MILLIGRAM, QD
     Route: 048
  14. LORAZEPAM [Concomitant]
     Active Substance: LORAZEPAM
     Indication: Product used for unknown indication
     Dosage: 1 MILLIGRAM, QD
     Route: 048
  15. PANTOPRAZOLE [Concomitant]
     Active Substance: PANTOPRAZOLE
     Indication: Product used for unknown indication
     Dosage: 40 MILLIGRAM, QD
     Route: 048
  16. CYANOCOBALAMIN\FOLIC ACID [Concomitant]
     Active Substance: CYANOCOBALAMIN\FOLIC ACID
     Indication: Product used for unknown indication
     Dosage: 1 TABLET PER DAY
     Route: 048
  17. FLUOXETINE HYDROCHLORIDE [Concomitant]
     Active Substance: FLUOXETINE HYDROCHLORIDE
     Indication: Product used for unknown indication
     Dosage: 1 TABLET PER DAY
     Route: 048
  18. COSDUO [Concomitant]
     Indication: Product used for unknown indication
     Dosage: 1 GTT DROPS, BID
     Route: 065
  19. LEVETIRACETAM [Concomitant]
     Active Substance: LEVETIRACETAM
     Indication: Product used for unknown indication
     Dosage: 500 MILLIGRAM, Q12H
     Route: 065
  20. FOSFOMYCIN [Concomitant]
     Active Substance: FOSFOMYCIN
     Indication: Urinary tract infection
     Dosage: UNK FOR 2 DAYS
     Route: 065
  21. LATANOPROST [Concomitant]
     Active Substance: LATANOPROST
     Indication: Product used for unknown indication
     Dosage: UNK
     Route: 065
     Dates: start: 202210
  22. CIPROFLOXACIN [Concomitant]
     Active Substance: CIPROFLOXACIN
     Indication: Urinary tract infection
     Dosage: 500 MILLIGRAM, Q12H
     Route: 065
  23. CORTICOSTEROID NOS [Concomitant]
     Active Substance: CORTICOSTEROID NOS
     Indication: Erythema
     Route: 065
  24. SERTACONAZOLE NITRATE [Concomitant]
     Active Substance: SERTACONAZOLE NITRATE
     Indication: Erythema
     Dosage: UNK
     Route: 065
  25. SULPIRIDE [Concomitant]
     Active Substance: SULPIRIDE
     Indication: Vertigo
     Dosage: 50 MILLIGRAM
     Route: 065

REACTIONS (103)
  - Hallucination [Recovered/Resolved]
  - Charles Bonnet syndrome [Recovered/Resolved]
  - Blindness [Not Recovered/Not Resolved]
  - Coma [Recovered/Resolved]
  - Seizure [Recovered/Resolved]
  - Depressed mood [Recovering/Resolving]
  - Intra-abdominal haematoma [Recovered/Resolved]
  - Dysarthria [Recovered/Resolved]
  - Visual impairment [Unknown]
  - Toothache [Recovered/Resolved]
  - Gingival swelling [Recovered/Resolved]
  - Pain in jaw [Recovered/Resolved]
  - Urinary tract infection [Recovered/Resolved]
  - Periorbital oedema [Unknown]
  - Angioedema [Recovered/Resolved]
  - Bilirubin conjugated increased [Recovered/Resolved]
  - Vomiting [Recovered/Resolved]
  - Pyrexia [Recovered/Resolved]
  - Protein albumin ratio increased [Recovered/Resolved]
  - Urine leukocyte esterase positive [Recovered/Resolved]
  - Blood creatinine increased [Recovered/Resolved]
  - Microalbuminuria [Unknown]
  - Lymphocyte count decreased [Recovered/Resolved]
  - Neutrophil percentage increased [Recovered/Resolved]
  - Mean platelet volume increased [Recovered/Resolved]
  - Blood bilirubin increased [Recovered/Resolved]
  - Mean cell haemoglobin concentration decreased [Recovered/Resolved]
  - Dysuria [Recovered/Resolved]
  - Red blood cell count decreased [Recovered/Resolved]
  - Haemoglobin decreased [Recovered/Resolved]
  - Mean cell volume increased [Recovered/Resolved]
  - Haematocrit decreased [Not Recovered/Not Resolved]
  - Nitrite urine present [Not Recovered/Not Resolved]
  - Haemoglobin urine present [Recovered/Resolved]
  - Myoglobin urine present [Recovered/Resolved]
  - Creatinine urine increased [Recovered/Resolved]
  - Fall [Recovered/Resolved]
  - Blood magnesium decreased [Recovered/Resolved]
  - Aphonia [Recovered/Resolved]
  - Dizziness [Recovered/Resolved]
  - Gait disturbance [Not Recovered/Not Resolved]
  - Productive cough [Recovered/Resolved]
  - Blood pressure increased [Recovered/Resolved]
  - Protein urine present [Recovered/Resolved]
  - Puncture site erythema [Recovered/Resolved]
  - Headache [Recovered/Resolved]
  - Nausea [Recovered/Resolved]
  - Injection site pruritus [Recovered/Resolved]
  - Paraesthesia oral [Recovered/Resolved]
  - Diarrhoea [Recovered/Resolved]
  - Brain natriuretic peptide increased [Recovered/Resolved]
  - White blood cells urine positive [Not Recovered/Not Resolved]
  - Urinary sediment present [Recovered/Resolved]
  - Crystal urine present [Unknown]
  - Asthenia [Not Recovered/Not Resolved]
  - Mental disorder [Recovered/Resolved]
  - Bacteriuria [Not Recovered/Not Resolved]
  - Injection site haematoma [Recovered/Resolved]
  - Platelet count decreased [Recovered/Resolved]
  - Vitamin A decreased [Not Recovered/Not Resolved]
  - Polyuria [Recovered/Resolved]
  - Urine odour abnormal [Recovered/Resolved]
  - Prealbumin decreased [Recovered/Resolved]
  - Escherichia test positive [Recovered/Resolved]
  - Nervous system disorder [Not Recovered/Not Resolved]
  - Disease progression [Not Recovered/Not Resolved]
  - Bedridden [Recovered/Resolved]
  - Pollakiuria [Recovered/Resolved]
  - Urinary tract discomfort [Recovered/Resolved]
  - Neutrophil count increased [Recovered/Resolved]
  - Blood glucose increased [Recovered/Resolved]
  - Gamma-glutamyltransferase increased [Recovered/Resolved]
  - Intraocular pressure test abnormal [Recovering/Resolving]
  - Cytology abnormal [Unknown]
  - Papilloma viral infection [Unknown]
  - Red blood cells urine positive [Recovered/Resolved]
  - Blood urea decreased [Not Recovered/Not Resolved]
  - Blood cholesterol increased [Not Recovered/Not Resolved]
  - Diarrhoea [Recovered/Resolved]
  - Decreased appetite [Not Recovered/Not Resolved]
  - Parosmia [Recovered/Resolved]
  - Taste disorder [Recovered/Resolved]
  - Erythema [Recovered/Resolved]
  - Fungal skin infection [Recovered/Resolved]
  - Alanine aminotransferase decreased [Recovered/Resolved]
  - Skin irritation [Recovered/Resolved]
  - Hyperhidrosis [Recovered/Resolved]
  - Dehydration [Recovered/Resolved]
  - Vertigo [Recovered/Resolved]
  - Fatigue [Not Recovered/Not Resolved]
  - Platelet distribution width increased [Not Recovered/Not Resolved]
  - Nocturia [Recovered/Resolved]
  - Discouragement [Not Recovered/Not Resolved]
  - Weight decreased [Not Recovered/Not Resolved]
  - Insomnia [Recovered/Resolved]
  - Urinary tract discomfort [Recovered/Resolved]
  - Dizziness [Recovered/Resolved]
  - Vertigo [Recovered/Resolved]
  - Balance disorder [Not Recovered/Not Resolved]
  - Ageusia [Recovered/Resolved]
  - Dysuria [Recovered/Resolved]
  - Bacterial test positive [Not Recovered/Not Resolved]
  - Blood sodium decreased [Unknown]

NARRATIVE: CASE EVENT DATE: 20211213
